FAERS Safety Report 10524221 (Version 1)
Quarter: 2014Q4

REPORT INFORMATION
  Report Type: Spontaneous
  Country: US (occurrence: None)
  Receive Date: 20141015
  Receipt Date: 20141015
  Transmission Date: 20150528
  Serious: Yes (Hospitalization)
  Sender: FDA-Public Use
  Company Number: None

PATIENT
  Age: 69 Year
  Sex: Male
  Weight: 104.9 kg

DRUGS (2)
  1. DAUNORUBICIN [Suspect]
     Active Substance: DAUNORUBICIN
     Dates: end: 20140923
  2. CYTARABINE. [Suspect]
     Active Substance: CYTARABINE
     Dates: end: 20140927

REACTIONS (2)
  - Respiratory disorder [None]
  - Blood creatinine increased [None]

NARRATIVE: CASE EVENT DATE: 20141012
